FAERS Safety Report 5108200-2 (Version None)
Quarter: 2006Q3

REPORT INFORMATION
  Report Type: 
  Country: None (occurrence: None)
  Receive Date: 20060919
  Receipt Date: 20060912
  Transmission Date: 20061208
  Serious: Yes (Other)
  Sender: FDA-Public Use
  Company Number: US-ROCHE-463196

PATIENT
  Age: 48 Year
  Sex: Male

DRUGS (9)
  1. PEGASYS [Suspect]
     Indication: HEPATITIS C
     Dosage: STRENGTH REPORTED AS 180 MCG/0.5CC.
     Route: 058
     Dates: start: 20060411, end: 20060911
  2. COPEGUS [Suspect]
     Indication: HEPATITIS C
     Route: 048
     Dates: start: 20060411, end: 20060911
  3. KLONOPIN [Concomitant]
     Indication: TREMOR
     Dosage: AT BEDTIME. INIDICATION REPORTED AS TREMORS, PANIC.
     Route: 048
  4. WELLBUTRIN [Concomitant]
     Indication: DEPRESSION
     Route: 048
  5. LEXAPRO [Concomitant]
     Indication: DEPRESSION
  6. OXYCONTIN [Concomitant]
     Indication: BACK PAIN
  7. ATENOLOL [Concomitant]
  8. ALPRAZOLAM [Concomitant]
     Dosage: REPORTED AS ALAZOPRAM.
  9. PROTONIX [Concomitant]

REACTIONS (7)
  - AMNESIA [None]
  - ASTHENIA [None]
  - DEHYDRATION [None]
  - DIARRHOEA [None]
  - PLATELET COUNT DECREASED [None]
  - PROTEIN TOTAL INCREASED [None]
  - WHITE BLOOD CELL COUNT DECREASED [None]
